FAERS Safety Report 8850074 (Version 1)
Quarter: 2012Q4

REPORT INFORMATION
  Report Type: 
  Country: DE (occurrence: DE)
  Receive Date: 20121019
  Receipt Date: 20121019
  Transmission Date: 20130627
  Serious: Yes (Other)
  Sender: FDA-Public Use
  Company Number: DE-JNJFOC-20121007710

PATIENT

DRUGS (1)
  1. REMICADE [Suspect]
     Indication: ACCIDENTAL EXPOSURE TO PRODUCT
     Route: 047

REACTIONS (1)
  - Accidental exposure to product [Unknown]
